FAERS Safety Report 13839595 (Version 1)
Quarter: 2017Q3

REPORT INFORMATION
  Report Type: Spontaneous
  Country: US (occurrence: US)
  Receive Date: 20170805
  Receipt Date: 20170805
  Transmission Date: 20171127
  Serious: No
  Sender: FDA-Public Use
  Company Number: None

PATIENT
  Age: 39 Year
  Sex: Female

DRUGS (20)
  1. CALCIUM + VITAMIN D [Concomitant]
     Active Substance: CALCIUM\VITAMIN D
  2. DOCUSATE [Concomitant]
     Active Substance: DOCUSATE
  3. SULFAMETHOXAZOLE/TRIMETHOPRIM [Concomitant]
     Active Substance: SULFAMETHOXAZOLE\TRIMETHOPRIM
  4. TACROLIMUS. [Suspect]
     Active Substance: TACROLIMUS
     Indication: IMMUNOSUPPRESSION
     Dosage: 3.5MG-4MG DAILY PO
     Route: 048
     Dates: start: 20161126
  5. ALENDRONATE [Concomitant]
     Active Substance: ALENDRONATE SODIUM
  6. INSULIN [Concomitant]
     Active Substance: INSULIN NOS
  7. ALBUTEROL. [Concomitant]
     Active Substance: ALBUTEROL
  8. LANSOPRAZOLE. [Concomitant]
     Active Substance: LANSOPRAZOLE
  9. SENNA [Concomitant]
     Active Substance: SENNA LEAF\SENNOSIDES\SENNOSIDES A AND B
  10. TRAZODONE [Concomitant]
     Active Substance: TRAZODONE HYDROCHLORIDE
  11. ACETAMINOPHEN. [Concomitant]
     Active Substance: ACETAMINOPHEN
  12. PREDNISONE. [Concomitant]
     Active Substance: PREDNISONE
  13. HYDROMORPHONE [Concomitant]
     Active Substance: HYDROMORPHONE
  14. SERTRALINE [Concomitant]
     Active Substance: SERTRALINE HYDROCHLORIDE
  15. ALPRAZOLAM. [Concomitant]
     Active Substance: ALPRAZOLAM
  16. ASPIRIN. [Concomitant]
     Active Substance: ASPIRIN
  17. MAGNESIUM OXIDE. [Concomitant]
     Active Substance: MAGNESIUM OXIDE
  18. METOPROLOL. [Concomitant]
     Active Substance: METOPROLOL
  19. MYCOPHENOLATE [Concomitant]
     Active Substance: MYCOPHENOLIC ACID
  20. VALGANCICLOVIR. [Concomitant]
     Active Substance: VALGANCICLOVIR

REACTIONS (6)
  - Nausea [None]
  - Blood sodium decreased [None]
  - Vomiting [None]
  - Abdominal pain [None]
  - Acute kidney injury [None]
  - Pain [None]

NARRATIVE: CASE EVENT DATE: 20170219
